FAERS Safety Report 7075759-8 (Version None)
Quarter: 2010Q4

REPORT INFORMATION
  Report Type: 
  Country: None (occurrence: None)
  Receive Date: 20101101
  Receipt Date: 20101022
  Transmission Date: 20110411
  Serious: Yes (Hospitalization, Other)
  Sender: FDA-Public Use
  Company Number: US-BIOGENIDEC-2010BI032750

PATIENT
  Sex: Female

DRUGS (3)
  1. AVONEX [Suspect]
     Indication: MULTIPLE SCLEROSIS
     Route: 030
     Dates: start: 20010301, end: 20080101
  2. AVONEX [Suspect]
     Route: 030
     Dates: start: 20030101, end: 20090701
  3. AVONEX [Suspect]
     Route: 030
     Dates: start: 20101019

REACTIONS (9)
  - FALL [None]
  - FATIGUE [None]
  - GOITRE [None]
  - INFLUENZA LIKE ILLNESS [None]
  - MEMORY IMPAIRMENT [None]
  - PALPITATIONS [None]
  - SKIN CANCER [None]
  - THYROID FUNCTION TEST ABNORMAL [None]
  - WEIGHT DECREASED [None]
